FAERS Safety Report 10071133 (Version 2)
Quarter: 2014Q2

REPORT INFORMATION
  Report Type: Spontaneous
  Country: US (occurrence: US)
  Receive Date: 20140410
  Receipt Date: 20140530
  Transmission Date: 20141212
  Serious: Yes (Death, Life-Threatening, Hospitalization, Other)
  Sender: FDA-Public Use
  Company Number: US-009507513-1404USA005935

PATIENT
  Sex: Female
  Weight: 107.94 kg

DRUGS (5)
  1. JANUMET [Suspect]
     Indication: TYPE 2 DIABETES MELLITUS
     Dosage: 50/1000 MG BID
     Route: 048
     Dates: start: 20080206, end: 20091029
  2. JANUMET [Suspect]
     Dosage: 50/500 MG BID
     Route: 048
     Dates: start: 20091014, end: 20091113
  3. JANUMET [Suspect]
     Dosage: 50/1000 MG BID
     Route: 048
     Dates: start: 20091110, end: 20100908
  4. METFORMIN [Concomitant]
     Indication: TYPE 2 DIABETES MELLITUS
  5. ACTOS [Concomitant]
     Indication: TYPE 2 DIABETES MELLITUS

REACTIONS (6)
  - Pancreatic carcinoma [Unknown]
  - Death [Fatal]
  - Central venous catheterisation [Unknown]
  - Lung neoplasm malignant [Unknown]
  - Renal cancer [Unknown]
  - Gastric cyst [Unknown]
